FAERS Safety Report 8185322-3 (Version None)
Quarter: 2012Q1

REPORT INFORMATION
  Report Type: 
  Country: None (occurrence: None)
  Receive Date: 20120305
  Receipt Date: 20120227
  Transmission Date: 20120608
  Serious: Yes (Other)
  Sender: FDA-Public Use
  Company Number: PHHY2012JP017591

PATIENT
  Sex: Female

DRUGS (4)
  1. CISPLATIN [Concomitant]
  2. ZOLEDRONIC ACID [Suspect]
     Indication: METASTASES TO BONE
     Dosage: UNK UKN, UNK
     Route: 041
     Dates: start: 20090201
  3. DOCETAXEL [Concomitant]
  4. TS 1 [Concomitant]
     Route: 048

REACTIONS (2)
  - THROMBOCYTOPENIA [None]
  - MICROANGIOPATHIC HAEMOLYTIC ANAEMIA [None]
